FAERS Safety Report 24278405 (Version 1)
Quarter: 2024Q3

REPORT INFORMATION
  Report Type: Spontaneous
  Country: US (occurrence: US)
  Receive Date: 20240903
  Receipt Date: 20240903
  Transmission Date: 20241017
  Serious: Yes (Other)
  Sender: BRISTOL MYERS SQUIBB
  Company Number: US-BRISTOL-MYERS SQUIBB COMPANY-2024-136787

PATIENT
  Age: 57 Year
  Sex: Female

DRUGS (5)
  1. POMALYST [Suspect]
     Active Substance: POMALIDOMIDE
     Indication: Plasma cell myeloma in remission
     Dosage: FREQUENCY: TAKE 1CAPSULE BY MOUTH ONE TIME PER DAY ON DAYS 1 TO 21, OFF DAYS 22 TO 28, OF 28 DAY CYC
     Route: 048
     Dates: start: 201809
  2. POMALYST [Suspect]
     Active Substance: POMALIDOMIDE
     Indication: Chemotherapy
  3. POMALYST [Suspect]
     Active Substance: POMALIDOMIDE
     Indication: Plasma cell myeloma
  4. PLAVIX [Concomitant]
     Active Substance: CLOPIDOGREL BISULFATE
  5. LOVENOX [Concomitant]
     Active Substance: ENOXAPARIN SODIUM

REACTIONS (2)
  - Cardiac disorder [Unknown]
  - Increased tendency to bruise [Unknown]
